FAERS Safety Report 8219198-2 (Version None)
Quarter: 2012Q1

REPORT INFORMATION
  Report Type: 
  Country: None (occurrence: None)
  Receive Date: 20120307
  Receipt Date: 20091118
  Transmission Date: 20120608
  Serious: No
  Sender: FDA-Public Use
  Company Number: PHEH2009US16737

PATIENT
  Age: 72 Year
  Sex: Female

DRUGS (2)
  1. AFINITOR [Suspect]
     Dosage: 10MG, UNK 5MG, UNK
  2. FISH OIL (FISH OIL) [Concomitant]

REACTIONS (2)
  - ALOPECIA [None]
  - OROPHARYNGEAL BLISTERING [None]
